FAERS Safety Report 12953421 (Version 1)
Quarter: 2016Q4

REPORT INFORMATION
  Report Type: Report from Study
  Country: TH (occurrence: TH)
  Receive Date: 20161117
  Receipt Date: 20161117
  Transmission Date: 20170207
  Serious: Yes (Death, Other)
  Sender: FDA-Public Use
  Company Number: TH-GILEAD-2016-0243163

PATIENT
  Age: 15 Year
  Sex: Female

DRUGS (3)
  1. 3TC [Concomitant]
     Active Substance: LAMIVUDINE
  2. DARUNAVIR W/RITONAVIR [Concomitant]
     Active Substance: DARUNAVIR\RITONAVIR
  3. TENOFOVIR DISOPROXIL FUMARATE. [Suspect]
     Active Substance: TENOFOVIR DISOPROXIL FUMARATE
     Indication: HIV INFECTION
     Route: 065

REACTIONS (2)
  - Autoimmune hepatitis [Unknown]
  - Sepsis [Fatal]
